FAERS Safety Report 16911783 (Version 1)
Quarter: 2019Q4

REPORT INFORMATION
  Report Type: Spontaneous
  Country: BR (occurrence: BR)
  Receive Date: 20191014
  Receipt Date: 20191014
  Transmission Date: 20200122
  Serious: Yes (Hospitalization)
  Sender: FDA-Public Use
  Company Number: BR-SA-2019SA026522

PATIENT
  Sex: Female
  Weight: 56 kg

DRUGS (3)
  1. AAS INFANTIL [Suspect]
     Active Substance: ASPIRIN
     Indication: ANTICOAGULANT THERAPY
     Dosage: 1 DF, 15 DAYS AGO (ESTIMATED DATE: 10-JAN-2019)
     Route: 048
  2. CLEXANE [Suspect]
     Active Substance: ENOXAPARIN SODIUM
     Indication: HYPERCOAGULATION
     Dosage: UNK
     Route: 065
     Dates: start: 201903
  3. ADDERA D3 [Concomitant]
     Active Substance: CHOLECALCIFEROL
     Indication: VITAMIN D
     Dosage: UNK
     Route: 065

REACTIONS (3)
  - Exposure during pregnancy [Unknown]
  - Product use in unapproved indication [Unknown]
  - Urinary tract infection [Recovered/Resolved]
